FAERS Safety Report 9646119 (Version 1)
Quarter: 2013Q4

REPORT INFORMATION
  Report Type: Spontaneous
  Country: AR (occurrence: AR)
  Receive Date: 20131025
  Receipt Date: 20131025
  Transmission Date: 20140711
  Serious: Yes (Death, Hospitalization, Other)
  Sender: FDA-Public Use
  Company Number: AR-JHP PHARMACEUTICALS, LLC-JHP201300622

PATIENT
  Sex: 0

DRUGS (2)
  1. COLY-MYCIN M PARENTERAL [Suspect]
  2. VANCOMYCIN [Suspect]

REACTIONS (2)
  - Renal failure acute [Unknown]
  - Death [Fatal]
